FAERS Safety Report 18371466 (Version 1)
Quarter: 2020Q4

REPORT INFORMATION
  Report Type: Spontaneous
  Country: US (occurrence: US)
  Receive Date: 20201012
  Receipt Date: 20201012
  Transmission Date: 20210114
  Serious: No
  Sender: FDA-Public Use
  Company Number: US-PFIZER INC-2020391478

PATIENT
  Age: 66 Year
  Sex: Female
  Weight: 93 kg

DRUGS (9)
  1. TYVASO [Suspect]
     Active Substance: TREPROSTINIL
     Indication: PULMONARY ARTERIAL HYPERTENSION
     Dosage: UNK
     Dates: start: 20200923
  2. ORENITRAM [Suspect]
     Active Substance: TREPROSTINIL
     Dosage: 0.5 MG, 3X/DAY [0.5 MG Q8H ORAL]
     Route: 048
     Dates: end: 2020
  3. SILDENAFIL CITRATE. [Suspect]
     Active Substance: SILDENAFIL CITRATE
     Dosage: UNK
     Dates: end: 20200930
  4. TYVASO [Suspect]
     Active Substance: TREPROSTINIL
     Dosage: 6 UG, 4X/DAY [6 UG (1 BREATH) FOUR TIMES A DAY (QID) ]
  5. ORENITRAM [Suspect]
     Active Substance: TREPROSTINIL
     Dosage: UNK
     Route: 048
  6. ORENITRAM [Suspect]
     Active Substance: TREPROSTINIL
     Indication: PULMONARY ARTERIAL HYPERTENSION
     Dosage: UNK
     Route: 048
     Dates: start: 20200331
  7. TYVASO [Suspect]
     Active Substance: TREPROSTINIL
     Dosage: 6 UG, 4X/DAY (6 UG QID (FOUR TIMES A DAY) INHALATION)
     Dates: start: 2020
  8. TYVASO [Suspect]
     Active Substance: TREPROSTINIL
     Dosage: UNK
     Dates: start: 20200927
  9. TYVASO [Suspect]
     Active Substance: TREPROSTINIL
     Dosage: UNK, 4X/DAY [18-54 UG (3-9 BREATHS) FOUR TIMES A DAY (QID)]

REACTIONS (1)
  - Flushing [Recovered/Resolved]

NARRATIVE: CASE EVENT DATE: 20200927
